FAERS Safety Report 4875973-3 (Version None)
Quarter: 2005Q4

REPORT INFORMATION
  Report Type: 
  Country: None (occurrence: None)
  Receive Date: 20051206
  Receipt Date: 20051004
  Transmission Date: 20060501
  Serious: Yes (Life-Threatening)
  Sender: FDA-Public Use
  Company Number: USA0506101407

PATIENT
  Age: 56 Year
  Sex: Female

DRUGS (6)
  1. CYMBALTA [Suspect]
     Indication: DEPRESSION
     Dates: start: 20050601, end: 20050624
  2. AMBIEN [Concomitant]
  3. LORAZEPAM [Concomitant]
  4. RESTORIL [Concomitant]
  5. PREVACID [Concomitant]
  6. MONOPRIL [Concomitant]

REACTIONS (4)
  - AGITATION [None]
  - INSOMNIA [None]
  - LOGORRHOEA [None]
  - SUICIDAL IDEATION [None]
